FAERS Safety Report 5310439-8 (Version None)
Quarter: 2007Q2

REPORT INFORMATION
  Report Type: 
  Country: None (occurrence: None)
  Receive Date: 20070427
  Receipt Date: 20070419
  Transmission Date: 20071010
  Serious: Yes (Hospitalization)
  Sender: FDA-Public Use
  Company Number: CA-BOEHRINGER INGELHEIM GMBH, GERMANY-2007-CN-00271CN

PATIENT
  Sex: Male

DRUGS (6)
  1. MICARDIS HCT [Suspect]
     Dates: start: 20060313, end: 20070117
  2. CRESTOR [Concomitant]
  3. EFFEXOR [Concomitant]
  4. SINGULAIR [Concomitant]
  5. WELLBUTRIN [Concomitant]
  6. TIAZAC [Concomitant]

REACTIONS (5)
  - DIZZINESS [None]
  - FALL [None]
  - FATIGUE [None]
  - HEART RATE DECREASED [None]
  - HYPOTENSION [None]
